FAERS Safety Report 24682560 (Version 1)
Quarter: 2024Q4

REPORT INFORMATION
  Report Type: Spontaneous
  Country: ES (occurrence: ES)
  Receive Date: 20241130
  Receipt Date: 20241130
  Transmission Date: 20250114
  Serious: Yes (Other)
  Sender: AMGEN
  Company Number: ES-AMGEN-ESPSP2024233031

PATIENT
  Age: 68 Year
  Sex: Male

DRUGS (7)
  1. NPLATE [Suspect]
     Active Substance: ROMIPLOSTIM
     Indication: Immune thrombocytopenia
     Dosage: 10 MICROGRAM/KILOGRAM
     Route: 065
  2. ELT [Concomitant]
  3. DEXAMETHASONE [Concomitant]
     Active Substance: DEXAMETHASONE
     Dosage: 40 MILLIGRAM, QD (4 } 3 PULSES)
  4. IMMUNE GLOBULIN [Concomitant]
     Dosage: UNK
     Route: 040
  5. ELTROMBOPAG [Concomitant]
     Active Substance: ELTROMBOPAG
     Dosage: 75 MILLIGRAM, Q12H
  6. VINBLASTINE [Concomitant]
     Active Substance: VINBLASTINE
     Dosage: 10 MILLIGRAM, Q3WK (EACH 21DAYS X3)
  7. MYCOPHENOLATE MOFETIL [Concomitant]
     Active Substance: MYCOPHENOLATE MOFETIL
     Dosage: 500 MILLIGRAM, Q12H

REACTIONS (4)
  - Neutropenia [Unknown]
  - Hepatotoxicity [Unknown]
  - Immune thrombocytopenia [Unknown]
  - Mucocutaneous haemorrhage [Unknown]
